FAERS Safety Report 4300322-9 (Version None)
Quarter: 2004Q1

REPORT INFORMATION
  Report Type: 
  Country: None (occurrence: None)
  Receive Date: 20040218
  Receipt Date: 20040203
  Transmission Date: 20041129
  Serious: Yes (Death, Hospitalization)
  Sender: FDA-Public Use
  Company Number: 2002IM000606

PATIENT
  Age: 50 Year
  Sex: Male
  Weight: 91.4 kg

DRUGS (33)
  1. ACTIMMUNE [Suspect]
     Dosage: 100 UG;TIW;SUBCUTANEOUS
     Route: 058
     Dates: start: 20020305, end: 20020815
  2. PRILOSEC [Concomitant]
  3. PROZAC [Concomitant]
  4. XANAX [Concomitant]
  5. SPIRONOLACTONE [Concomitant]
  6. LASIX [Concomitant]
  7. PROPRANOLOL [Concomitant]
  8. LEVSIN [Concomitant]
  9. DEMEROL [Concomitant]
  10. MILK THISTLE [Concomitant]
  11. IBUPROFEN [Concomitant]
  12. ROBITUSSIN A-C [Concomitant]
  13. ZITHROMAX [Concomitant]
  14. VACTROBAN OINTMENT 2% [Concomitant]
  15. GLY-OXIDE MOUTHWASH [Concomitant]
  16. FUROSEMIDE [Concomitant]
  17. SEROQUEL [Concomitant]
  18. PROTONIX [Concomitant]
  19. METHADONE HCL [Concomitant]
  20. HUMULIN N [Concomitant]
  21. LACTULOSE [Concomitant]
  22. VITAMIN K TAB [Concomitant]
  23. ATIVAN [Concomitant]
  24. BENADRYL [Concomitant]
  25. CATAPRES [Concomitant]
  26. HUMULIN R [Concomitant]
  27. POTASSIUM [Concomitant]
  28. LORAZEPAM [Concomitant]
  29. TRAZODONE HCL [Concomitant]
  30. PROPRANOLOL [Concomitant]
  31. NOVOLOG [Concomitant]
  32. LANTUS [Concomitant]
  33. SPIRONOLACTONE [Concomitant]

REACTIONS (16)
  - BRADYCARDIA [None]
  - CHOLELITHIASIS [None]
  - COMA [None]
  - DIALYSIS [None]
  - DISSEMINATED INTRAVASCULAR COAGULATION [None]
  - HEPATIC CIRRHOSIS [None]
  - HEPATIC ENCEPHALOPATHY [None]
  - HEPATIC FAILURE [None]
  - HYPOKALAEMIA [None]
  - METABOLIC ACIDOSIS [None]
  - MULTI-ORGAN FAILURE [None]
  - OESOPHAGEAL VARICES HAEMORRHAGE [None]
  - PROCEDURAL HYPOTENSION [None]
  - PUPILS UNEQUAL [None]
  - RENAL FAILURE [None]
  - SEPSIS [None]
